FAERS Safety Report 14705104 (Version 1)
Quarter: 2018Q2

REPORT INFORMATION
  Report Type: Spontaneous
  Country: CN (occurrence: CN)
  Receive Date: 20180402
  Receipt Date: 20180402
  Transmission Date: 20180711
  Serious: Yes (Other)
  Sender: FDA-Public Use
  Company Number: CN-MYLANLABS-2018M1020238

PATIENT
  Age: 41 Year
  Sex: Male

DRUGS (4)
  1. CISPLATIN. [Suspect]
     Active Substance: CISPLATIN
     Indication: NEOPLASM MALIGNANT
     Dosage: 75 MG/M2 ON DAY 1
     Route: 042
     Dates: start: 20130531
  2. DOCETAXEL. [Suspect]
     Active Substance: DOCETAXEL
     Indication: NEOPLASM MALIGNANT
     Dosage: 75 MG/M2
     Route: 042
     Dates: start: 20130531
  3. DOCETAXEL. [Suspect]
     Active Substance: DOCETAXEL
     Indication: CHOLESTEROL GRANULOMA
     Dosage: 4 WEEKLY DOCETAXEL 40MG; ALONG WITH RADIATION THERAPY
     Route: 065
  4. CISPLATIN. [Suspect]
     Active Substance: CISPLATIN
     Indication: CHOLESTEROL GRANULOMA

REACTIONS (3)
  - Bone marrow failure [Unknown]
  - Pigmentation disorder [Unknown]
  - Decreased appetite [Unknown]
